FAERS Safety Report 19176035 (Version 9)
Quarter: 2022Q4

REPORT INFORMATION
  Report Type: Report from Study
  Country: US (occurrence: US)
  Receive Date: 20210423
  Receipt Date: 20221230
  Transmission Date: 20230113
  Serious: Yes (Hospitalization, Other)
  Sender: FDA-Public Use
  Company Number: US-TAKEDA-US202018327

PATIENT
  Age: 29 Year
  Sex: Female
  Weight: 90 kg

DRUGS (91)
  1. PARATHYROID HORMONE [Suspect]
     Active Substance: PARATHYROID HORMONE
     Indication: Hypoparathyroidism
     Dosage: 50 MICROGRAM, QD
     Route: 065
     Dates: start: 20150909, end: 20160106
  2. PARATHYROID HORMONE [Suspect]
     Active Substance: PARATHYROID HORMONE
     Indication: Hypoparathyroidism
     Dosage: 50 MICROGRAM, QD
     Route: 065
     Dates: start: 20150909, end: 20160106
  3. PARATHYROID HORMONE [Suspect]
     Active Substance: PARATHYROID HORMONE
     Indication: Hypoparathyroidism
     Dosage: 50 MICROGRAM, QD
     Route: 065
     Dates: start: 20150909, end: 20160106
  4. PARATHYROID HORMONE [Suspect]
     Active Substance: PARATHYROID HORMONE
     Dosage: 75 MICROGRAM, QD
     Route: 065
     Dates: start: 20160206, end: 20161003
  5. PARATHYROID HORMONE [Suspect]
     Active Substance: PARATHYROID HORMONE
     Dosage: 75 MICROGRAM, QD
     Route: 065
     Dates: start: 20160206, end: 20161003
  6. PARATHYROID HORMONE [Suspect]
     Active Substance: PARATHYROID HORMONE
     Dosage: 75 MICROGRAM, QD
     Route: 065
     Dates: start: 20160206, end: 20161003
  7. PARATHYROID HORMONE [Suspect]
     Active Substance: PARATHYROID HORMONE
     Dosage: 100 MICROGRAM, QD
     Route: 065
     Dates: start: 20161003, end: 20190405
  8. PARATHYROID HORMONE [Suspect]
     Active Substance: PARATHYROID HORMONE
     Dosage: 100 MICROGRAM, QD
     Route: 065
     Dates: start: 20161003, end: 20190405
  9. PARATHYROID HORMONE [Suspect]
     Active Substance: PARATHYROID HORMONE
     Dosage: 100 MICROGRAM, QD
     Route: 065
     Dates: start: 20161003, end: 20190405
  10. IBUPROFEN [Concomitant]
     Active Substance: IBUPROFEN
     Indication: Pain
     Dosage: UNK
     Route: 048
     Dates: start: 20140717, end: 20170510
  11. ZOFRAN [Concomitant]
     Active Substance: ONDANSETRON HYDROCHLORIDE
     Indication: Nausea
     Dosage: UNK
     Dates: start: 20140409
  12. POTASSIUM [Concomitant]
     Active Substance: POTASSIUM
     Indication: Hypokalaemia
     Dosage: UNK
     Dates: start: 20140703
  13. SYNTHROID [Concomitant]
     Active Substance: LEVOTHYROXINE SODIUM
     Indication: Hypothyroidism
     Dosage: UNK
     Route: 065
     Dates: start: 20120612
  14. ESTRADIOL [Concomitant]
     Active Substance: ESTRADIOL
     Indication: Hypogonadism
     Dosage: UNK, 2/WEEK
     Dates: start: 20150109
  15. ACETAMINOPHEN\OXYCODONE HYDROCHLORIDE\OXYCODONE TEREPHTHALATE [Concomitant]
     Active Substance: ACETAMINOPHEN\OXYCODONE HYDROCHLORIDE\OXYCODONE TEREPHTHALATE
     Indication: Pain
     Dosage: UNK
     Route: 048
     Dates: start: 20131120, end: 20170608
  16. PROMETHAZINE HYDROCHLORIDE [Concomitant]
     Active Substance: PROMETHAZINE HYDROCHLORIDE
     Indication: Nausea
     Dosage: UNK
     Route: 048
     Dates: start: 20140410
  17. ALBUTEROL SULFATE [Concomitant]
     Active Substance: ALBUTEROL SULFATE
     Indication: Dyspnoea
     Dosage: UNK
     Route: 055
     Dates: start: 20160106
  18. CYCLOBENZAPRINE [Concomitant]
     Active Substance: CYCLOBENZAPRINE
     Indication: Idiopathic intracranial hypertension
     Dosage: UNK
     Route: 048
     Dates: start: 20160709, end: 201607
  19. DOCUSATE SODIUM [Concomitant]
     Active Substance: DOCUSATE SODIUM
     Indication: Idiopathic intracranial hypertension
     Dosage: UNK
     Route: 048
     Dates: start: 20160709, end: 201607
  20. OXYCODONE [Concomitant]
     Active Substance: OXYCODONE
     Indication: Idiopathic intracranial hypertension
     Dosage: UNK
     Route: 048
     Dates: start: 20160709, end: 201607
  21. OXYCODONE [Concomitant]
     Active Substance: OXYCODONE
     Indication: Idiopathic intracranial hypertension
     Dosage: UNK
     Route: 048
     Dates: start: 20160614, end: 201606
  22. POLYETHYLENE GLYCOL [Concomitant]
     Active Substance: POLYETHYLENE GLYCOL
     Indication: Idiopathic intracranial hypertension
     Dosage: UNK
     Route: 048
     Dates: start: 20160709, end: 201607
  23. ACETAMINOPHEN\HYDROCODONE [Concomitant]
     Active Substance: ACETAMINOPHEN\HYDROCODONE
     Indication: Condition aggravated
     Dosage: UNK
     Route: 048
     Dates: start: 20160828, end: 201609
  24. TRAMADOL [Concomitant]
     Active Substance: TRAMADOL
     Indication: Condition aggravated
     Dosage: 50 MILLIGRAM
     Route: 048
     Dates: start: 20160828, end: 201610
  25. KEFLEX [Concomitant]
     Active Substance: CEPHALEXIN
     Indication: Shunt infection
     Dosage: 250 MILLIGRAM
     Route: 048
     Dates: start: 20160819, end: 20160828
  26. DIAZEPAM [Concomitant]
     Active Substance: DIAZEPAM
     Indication: Anxiety
     Dosage: UNK
     Route: 058
     Dates: start: 20140114, end: 20170530
  27. DIAZEPAM [Concomitant]
     Active Substance: DIAZEPAM
     Indication: Headache
     Dosage: UNK
     Route: 042
     Dates: start: 20160421, end: 20160421
  28. PERCOCET [Concomitant]
     Active Substance: ACETAMINOPHEN\OXYCODONE HYDROCHLORIDE
     Indication: Procedural pain
     Dosage: UNK
     Route: 048
     Dates: start: 20140808, end: 20140808
  29. PERCOCET [Concomitant]
     Active Substance: ACETAMINOPHEN\OXYCODONE HYDROCHLORIDE
     Indication: Pain
     Dosage: UNK
     Route: 048
     Dates: start: 20150511, end: 20150511
  30. MORPHINE [Concomitant]
     Active Substance: MORPHINE
     Indication: Chest pain
     Dosage: UNK
     Route: 042
     Dates: start: 20141012, end: 20141012
  31. MORPHINE [Concomitant]
     Active Substance: MORPHINE
     Indication: Procedural pain
     Dosage: UNK
     Route: 065
     Dates: start: 20141117, end: 20141117
  32. MORPHINE [Concomitant]
     Active Substance: MORPHINE
     Indication: Pain
     Dosage: UNK
     Route: 065
     Dates: start: 20150108, end: 20150108
  33. MORPHINE [Concomitant]
     Active Substance: MORPHINE
     Indication: Empyema
     Dosage: UNK
     Route: 065
     Dates: start: 20150108, end: 20150108
  34. MORPHINE [Concomitant]
     Active Substance: MORPHINE
     Dosage: UNK
     Route: 065
     Dates: start: 20150511, end: 20150511
  35. MORPHINE [Concomitant]
     Active Substance: MORPHINE
     Dosage: UNK
     Route: 065
     Dates: start: 20151001, end: 20151001
  36. MORPHINE [Concomitant]
     Active Substance: MORPHINE
     Dosage: UNK
     Route: 065
     Dates: start: 20151025, end: 20151025
  37. MORPHINE [Concomitant]
     Active Substance: MORPHINE
     Dosage: UNK
     Route: 065
     Dates: start: 20151025, end: 20151025
  38. MORPHINE [Concomitant]
     Active Substance: MORPHINE
     Dosage: UNK
     Route: 058
     Dates: start: 20160630, end: 20160630
  39. MORPHINE [Concomitant]
     Active Substance: MORPHINE
     Dosage: UNK
     Route: 042
     Dates: start: 20161017, end: 20161017
  40. ZOFRAN [Concomitant]
     Active Substance: ONDANSETRON HYDROCHLORIDE
     Indication: Chest pain
     Dosage: UNK
     Route: 042
     Dates: start: 20141012, end: 20141012
  41. ZOFRAN [Concomitant]
     Active Substance: ONDANSETRON HYDROCHLORIDE
     Indication: Procedural pain
     Dosage: UNK
     Route: 048
     Dates: start: 20141117, end: 20141117
  42. ZOFRAN [Concomitant]
     Active Substance: ONDANSETRON HYDROCHLORIDE
     Indication: Hypocalcaemia
     Dosage: UNK
     Route: 042
     Dates: start: 20141125, end: 20141125
  43. ZOFRAN [Concomitant]
     Active Substance: ONDANSETRON HYDROCHLORIDE
     Indication: Nausea
     Dosage: UNK
     Route: 042
     Dates: start: 20150108, end: 20150108
  44. ZOFRAN [Concomitant]
     Active Substance: ONDANSETRON HYDROCHLORIDE
     Dosage: UNK
     Route: 042
     Dates: start: 20150410, end: 20150410
  45. ZOFRAN [Concomitant]
     Active Substance: ONDANSETRON HYDROCHLORIDE
     Dosage: UNK
     Route: 042
     Dates: start: 20150601, end: 20150601
  46. ZOFRAN [Concomitant]
     Active Substance: ONDANSETRON HYDROCHLORIDE
     Dosage: UNK
     Route: 042
     Dates: start: 20151001, end: 20151001
  47. ZOFRAN [Concomitant]
     Active Substance: ONDANSETRON HYDROCHLORIDE
     Dosage: UNK
     Route: 042
     Dates: start: 20151025, end: 20151025
  48. ASPIRIN [Concomitant]
     Active Substance: ASPIRIN
     Indication: Chest pain
     Dosage: UNK
     Route: 048
     Dates: start: 20141012, end: 20141012
  49. DILAUDID [Concomitant]
     Active Substance: HYDROMORPHONE HYDROCHLORIDE
     Indication: Procedural pain
     Dosage: UNK
     Route: 042
     Dates: start: 20141117, end: 20141117
  50. DILAUDID [Concomitant]
     Active Substance: HYDROMORPHONE HYDROCHLORIDE
     Indication: Hypocalcaemia
     Dosage: UNK
     Route: 042
     Dates: start: 20141125, end: 20141125
  51. BENADRYL [Concomitant]
     Active Substance: DIPHENHYDRAMINE HYDROCHLORIDE
     Indication: Hypersensitivity
     Dosage: UNK
     Route: 042
     Dates: start: 20150108, end: 20150108
  52. BENADRYL [Concomitant]
     Active Substance: DIPHENHYDRAMINE HYDROCHLORIDE
     Indication: Headache
     Dosage: UNK
     Route: 042
     Dates: start: 20150511, end: 20150511
  53. BENADRYL [Concomitant]
     Active Substance: DIPHENHYDRAMINE HYDROCHLORIDE
     Dosage: UNK
     Route: 042
     Dates: start: 20150601, end: 20150601
  54. BENADRYL [Concomitant]
     Active Substance: DIPHENHYDRAMINE HYDROCHLORIDE
     Dosage: UNK
     Route: 042
     Dates: start: 20160906, end: 20160906
  55. TORADOL [Concomitant]
     Active Substance: KETOROLAC TROMETHAMINE
     Indication: Pain
     Dosage: UNK
     Route: 065
     Dates: start: 20150108, end: 20150108
  56. TORADOL [Concomitant]
     Active Substance: KETOROLAC TROMETHAMINE
     Indication: Seizure
     Dosage: UNK
     Route: 042
     Dates: start: 20150410, end: 20150410
  57. CIPRO [Concomitant]
     Active Substance: CIPROFLOXACIN HYDROCHLORIDE
     Indication: Urinary tract infection
     Dosage: UNK
     Route: 048
     Dates: start: 20150410, end: 20150410
  58. SOLU-MEDROL [Concomitant]
     Active Substance: METHYLPREDNISOLONE SODIUM SUCCINATE
     Indication: Eczema
     Dosage: UNK
     Route: 065
     Dates: start: 20150511, end: 20150511
  59. MYLANTA [Concomitant]
     Active Substance: ALUMINUM HYDROXIDE\DIMETHICONE\MAGNESIUM HYDROXIDE
     Dosage: UNK
     Route: 065
     Dates: start: 20150511, end: 20150511
  60. LIDOCAINE [Concomitant]
     Active Substance: LIDOCAINE
     Dosage: UNK
     Route: 065
     Dates: start: 20150511, end: 20150511
  61. PEPCID [Concomitant]
     Active Substance: FAMOTIDINE
     Indication: Pain
     Dosage: UNK
     Dates: start: 20150511, end: 20150511
  62. PHENERGAN [Concomitant]
     Active Substance: PROMETHAZINE HYDROCHLORIDE
     Indication: Nausea
     Dosage: UNK
     Route: 065
     Dates: start: 20150601, end: 20150601
  63. ADVIL [Concomitant]
     Active Substance: IBUPROFEN
     Indication: Chest pain
     Dosage: UNK
     Route: 048
     Dates: start: 20151001, end: 20151001
  64. CEFTRIAXONE SODIUM [Concomitant]
     Active Substance: CEFTRIAXONE SODIUM
     Indication: Meningitis
     Dosage: UNK
     Route: 042
     Dates: start: 20160106, end: 20160108
  65. CALCIUM GLUCONATE [Concomitant]
     Active Substance: CALCIUM GLUCONATE
     Indication: Headache
     Dosage: UNK
     Route: 042
     Dates: start: 20160301, end: 20160301
  66. KETOROLAC [Concomitant]
     Active Substance: KETOROLAC TROMETHAMINE
     Indication: Headache
     Dosage: UNK
     Route: 042
     Dates: start: 20160301, end: 20160301
  67. KETOROLAC [Concomitant]
     Active Substance: KETOROLAC TROMETHAMINE
     Indication: Idiopathic intracranial hypertension
     Dosage: UNK
     Route: 042
     Dates: start: 20160906, end: 20160906
  68. KETOROLAC [Concomitant]
     Active Substance: KETOROLAC TROMETHAMINE
     Indication: Empyema
     Dosage: UNK
     Route: 058
     Dates: start: 20160630, end: 20160630
  69. KETOROLAC [Concomitant]
     Active Substance: KETOROLAC TROMETHAMINE
     Dosage: UNK
     Route: 042
     Dates: start: 20161017, end: 20161019
  70. PROMETHAZINE [Concomitant]
     Active Substance: PROMETHAZINE HYDROCHLORIDE
     Indication: Headache
     Dosage: UNK
     Route: 042
     Dates: start: 20160301, end: 20160301
  71. SENNA [Concomitant]
     Active Substance: SENNA LEAF\SENNOSIDES\SENNOSIDES A AND B
     Indication: Constipation
     Dosage: UNK
     Route: 048
     Dates: start: 20160614, end: 201606
  72. SENNA [Concomitant]
     Active Substance: SENNA LEAF\SENNOSIDES\SENNOSIDES A AND B
     Indication: Idiopathic intracranial hypertension
  73. CYCLOBENZAPRINE HYDROCHLORIDE [Concomitant]
     Active Substance: CYCLOBENZAPRINE HYDROCHLORIDE
     Indication: Idiopathic intracranial hypertension
     Dosage: UNK
     Route: 048
     Dates: start: 20160709, end: 201607
  74. DOCUSATE SODIUM [Concomitant]
     Active Substance: DOCUSATE SODIUM
     Indication: Idiopathic intracranial hypertension
     Dosage: UNK
     Route: 048
     Dates: start: 20160709, end: 201607
  75. ONDANSETRON [Concomitant]
     Active Substance: ONDANSETRON
     Indication: Idiopathic intracranial hypertension
     Dosage: UNK
     Route: 058
     Dates: start: 20160630, end: 20160630
  76. HYDROCODONE BITARTRATE AND ACETAMINOPHEN [Concomitant]
     Active Substance: ACETAMINOPHEN\HYDROCODONE BITARTRATE
     Indication: Idiopathic intracranial hypertension
     Dosage: UNK
     Route: 048
     Dates: start: 20160828, end: 201609
  77. KEFLEX [Concomitant]
     Active Substance: CEPHALEXIN
     Indication: Wound infection
     Dosage: UNK
     Route: 048
     Dates: start: 20160819, end: 20160828
  78. KEFLEX [Concomitant]
     Active Substance: CEPHALEXIN
     Indication: Wound dehiscence
     Dosage: UNK
     Route: 048
     Dates: start: 20170523, end: 20170530
  79. PIPERACILLIN AND TAZOBACTAM [Concomitant]
     Active Substance: PIPERACILLIN SODIUM\TAZOBACTAM SODIUM
     Indication: Empyema
     Dosage: UNK
     Route: 042
     Dates: start: 20161017, end: 20161017
  80. VANCOMYCIN [Concomitant]
     Active Substance: VANCOMYCIN
     Indication: Empyema
     Dosage: UNK
     Route: 042
     Dates: start: 20161017, end: 20161018
  81. IOPAMIDOL [Concomitant]
     Active Substance: IOPAMIDOL
     Indication: Empyema
     Dosage: UNK
     Route: 042
     Dates: start: 20161017, end: 20161017
  82. HEPARIN [Concomitant]
     Active Substance: HEPARIN SODIUM
     Indication: Empyema
     Dosage: UNK
     Route: 058
     Dates: start: 20161018, end: 20161020
  83. PIPERACILLIN AND TAZOBACTAM [Concomitant]
     Active Substance: PIPERACILLIN SODIUM\TAZOBACTAM SODIUM
     Indication: Empyema
     Dosage: UNK
     Route: 042
     Dates: start: 20161018, end: 20161020
  84. DAPTOMYCIN [Concomitant]
     Active Substance: DAPTOMYCIN
     Indication: Empyema
     Dosage: UNK
     Route: 042
     Dates: start: 20161019, end: 20161019
  85. ESTRADIOL [Concomitant]
     Active Substance: ESTRADIOL
     Indication: Empyema
     Dosage: UNK
     Route: 061
     Dates: start: 20161019, end: 20161027
  86. CEFTRIAXONE [Concomitant]
     Active Substance: CEFTRIAXONE
     Indication: Empyema
     Dosage: UNK
     Route: 042
     Dates: start: 20161020, end: 20161027
  87. PNEUMOCOCCAL VACCINE POLYVALENT [Concomitant]
     Active Substance: PNEUMOCOCCAL VACCINE POLYVALENT
     Indication: Empyema
     Dosage: UNK
     Route: 030
     Dates: start: 20161021, end: 20161026
  88. SENNA LAXATIVE AND DOCUSATE SODIUM [Concomitant]
     Indication: Empyema
     Dosage: UNK
     Route: 048
     Dates: start: 20161019, end: 20161025
  89. SENNA LAXATIVE AND DOCUSATE SODIUM [Concomitant]
     Indication: Constipation
     Dosage: UNK
     Route: 048
     Dates: start: 20170317, end: 20170318
  90. FLUCONAZOLE [Concomitant]
     Active Substance: FLUCONAZOLE
     Indication: Vulvovaginal mycotic infection
     Dosage: UNK
     Route: 048
     Dates: start: 20161202, end: 20161208
  91. HYDROCORTISONE [Concomitant]
     Active Substance: HYDROCORTISONE
     Indication: Vulvovaginal mycotic infection
     Dosage: UNK
     Route: 061
     Dates: start: 20161202, end: 20170210

REACTIONS (4)
  - Idiopathic intracranial hypertension [Recovered/Resolved]
  - Postoperative wound infection [Recovered/Resolved]
  - Infectious pleural effusion [Recovered/Resolved]
  - Staphylococcal infection [Recovered/Resolved]

NARRATIVE: CASE EVENT DATE: 20160613
